FAERS Safety Report 21446069 (Version 1)
Quarter: 2022Q4

REPORT INFORMATION
  Report Type: Spontaneous
  Country: US (occurrence: None)
  Receive Date: 20221011
  Receipt Date: 20221011
  Transmission Date: 20230113
  Serious: No
  Sender: FDA-Public Use
  Company Number: None

PATIENT
  Age: 42 Year
  Sex: Female
  Weight: 74.25 kg

DRUGS (1)
  1. SUN BUM SUNSCREEN LIP BALM BROAD SPECTRUM SPF 30 MANGO [Suspect]
     Active Substance: AVOBENZONE\HOMOSALATE\OCTINOXATE\OCTISALATE
     Indication: Prophylaxis against solar radiation
     Dosage: FREQUENCY : TWICE A DAY;?
     Route: 061
     Dates: start: 20221008, end: 20221008

REACTIONS (3)
  - Lip swelling [None]
  - Burning sensation [None]
  - Skin exfoliation [None]

NARRATIVE: CASE EVENT DATE: 20221009
